FAERS Safety Report 10478231 (Version 2)
Quarter: 2014Q4

REPORT INFORMATION
  Report Type: Spontaneous
  Country: GB (occurrence: GB)
  Receive Date: 20140926
  Receipt Date: 20141113
  Transmission Date: 20150528
  Serious: Yes (Other)
  Sender: FDA-Public Use
  Company Number: CHPA2014GB012693

PATIENT
  Age: 62 Year
  Sex: Female

DRUGS (5)
  1. OTRIVIN [Suspect]
     Active Substance: XYLOMETAZOLINE
     Indication: PROPHYLAXIS
  2. ACETAMINOPHEN. [Concomitant]
     Active Substance: ACETAMINOPHEN
     Indication: BACK PAIN
  3. AMITRIPTYLINE [Concomitant]
     Active Substance: AMITRIPTYLINE
     Dosage: 10 MG, DAILY
  4. OTRIVIN [Suspect]
     Active Substance: XYLOMETAZOLINE
     Indication: SEASONAL ALLERGY
     Dosage: UNK UNK, QD
     Route: 045
  5. OTRIVIN [Suspect]
     Active Substance: XYLOMETAZOLINE
     Indication: OFF LABEL USE

REACTIONS (5)
  - Influenza [Unknown]
  - Therapeutic response unexpected [Unknown]
  - Drug dependence [Unknown]
  - Incorrect drug administration duration [Unknown]
  - Nasopharyngitis [Recovered/Resolved]
